FAERS Safety Report 13861594 (Version 1)
Quarter: 2017Q3

REPORT INFORMATION
  Report Type: Spontaneous
  Country: US (occurrence: US)
  Receive Date: 20170811
  Receipt Date: 20170811
  Transmission Date: 20171127
  Serious: Yes (Other)
  Sender: FDA-Public Use
  Company Number: US-SA-2017SA146996

PATIENT
  Age: 28 Year
  Sex: Female

DRUGS (2)
  1. AUBAGIO [Suspect]
     Active Substance: TERIFLUNOMIDE
     Indication: MULTIPLE SCLEROSIS
     Route: 048
     Dates: start: 201705, end: 20170801
  2. CHANTIX [Suspect]
     Active Substance: VARENICLINE TARTRATE
     Route: 065
     Dates: end: 2017

REACTIONS (2)
  - Suicidal ideation [Unknown]
  - Stress [Unknown]

NARRATIVE: CASE EVENT DATE: 2017
